FAERS Safety Report 12437764 (Version 1)
Quarter: 2016Q2

REPORT INFORMATION
  Report Type: Spontaneous
  Country: US (occurrence: None)
  Receive Date: 20160603
  Receipt Date: 20160603
  Transmission Date: 20160815
  Serious: No
  Sender: FDA-Public Use
  Company Number: None

PATIENT
  Age: 58 Year
  Sex: Female

DRUGS (1)
  1. EXJADE [Suspect]
     Active Substance: DEFERASIROX
     Indication: HAEMOCHROMATOSIS
     Dosage: 1500MG QD DILUTE AND DRINK
     Dates: start: 201604

REACTIONS (2)
  - Sickle cell anaemia [None]
  - Drug dose omission [None]

NARRATIVE: CASE EVENT DATE: 2016
